FAERS Safety Report 11895147 (Version 1)
Quarter: 2016Q1

REPORT INFORMATION
  Report Type: Spontaneous
  Country: US (occurrence: US)
  Receive Date: 20160107
  Receipt Date: 20160107
  Transmission Date: 20160526
  Serious: No
  Sender: FDA-Public Use
  Company Number: US-PFIZER INC-2015436814

PATIENT
  Age: 55 Year
  Sex: Male

DRUGS (7)
  1. KLONOPIN [Suspect]
     Active Substance: CLONAZEPAM
     Dosage: UNK
  2. ROBAXIN [Suspect]
     Active Substance: METHOCARBAMOL
     Dosage: UNK
  3. MORPHINE SULFATE. [Suspect]
     Active Substance: MORPHINE SULFATE
     Dosage: UNK
  4. LEXAPRO [Suspect]
     Active Substance: ESCITALOPRAM OXALATE
     Dosage: UNK
  5. METHADONE [Suspect]
     Active Substance: METHADONE HYDROCHLORIDE
     Dosage: UNK
  6. OXYCODONE [Suspect]
     Active Substance: OXYCODONE
     Dosage: UNK
  7. METFORMIN [Suspect]
     Active Substance: METFORMIN HYDROCHLORIDE
     Dosage: UNK

REACTIONS (1)
  - Drug hypersensitivity [Unknown]
